FAERS Safety Report 9499426 (Version 1)
Quarter: 2013Q3

REPORT INFORMATION
  Report Type: Spontaneous
  Country: CH (occurrence: CH)
  Receive Date: 20130905
  Receipt Date: 20130905
  Transmission Date: 20140515
  Serious: Yes (Other)
  Sender: FDA-Public Use
  Company Number: CH-ROCHE-1269769

PATIENT
  Age: 61 Year
  Sex: Male

DRUGS (1)
  1. CEFTRIAXONE [Suspect]
     Indication: ENDOCARDITIS
     Route: 042

REACTIONS (3)
  - Agranulocytosis [Recovered/Resolved]
  - Abscess jaw [Recovered/Resolved]
  - Stomatitis [Recovered/Resolved]
